FAERS Safety Report 10113057 (Version 2)
Quarter: 2015Q1

REPORT INFORMATION
  Report Type: Other
  Country: US (occurrence: US)
  Receive Date: 20140425
  Receipt Date: 20150203
  Transmission Date: 20150720
  Serious: Yes (Hospitalization, Other)
  Sender: FDA-Public Use
  Company Number: US-GSKPPD-2014GSK014917

PATIENT
  Age: 51 Year
  Sex: Female

DRUGS (6)
  1. LOPRESSOR [Concomitant]
     Active Substance: METOPROLOL TARTRATE
  2. FUROSEMIDE. [Concomitant]
     Active Substance: FUROSEMIDE
  3. LIPITOR [Concomitant]
     Active Substance: ATORVASTATIN CALCIUM
  4. ASPIRIN. [Concomitant]
     Active Substance: ASPIRIN
  5. AVANDIA [Suspect]
     Active Substance: ROSIGLITAZONE MALEATE
     Indication: DIABETES MELLITUS
     Route: 048
  6. AVAPRO [Concomitant]
     Active Substance: IRBESARTAN

REACTIONS (2)
  - Cardiac failure congestive [Recovered/Resolved]
  - Myocardial ischaemia [Unknown]

NARRATIVE: CASE EVENT DATE: 20030525
